FAERS Safety Report 5301999-1 (Version None)
Quarter: 2007Q2

REPORT INFORMATION
  Report Type: 
  Country: None (occurrence: None)
  Receive Date: 20070416
  Receipt Date: 20070416
  Transmission Date: 20071010
  Serious: Yes (Other)
  Sender: FDA-Public Use
  Company Number: None

PATIENT
  Sex: Female
  Weight: 89.3586 kg

DRUGS (3)
  1. LEVAQUIN [Suspect]
     Indication: EAR INFECTION
     Dosage: 500MG   1 DAILY  PO
     Route: 048
     Dates: start: 20070411, end: 20070414
  2. LEVAQUIN [Suspect]
     Indication: PHARYNGITIS STREPTOCOCCAL
     Dosage: 500MG   1 DAILY  PO
     Route: 048
     Dates: start: 20070411, end: 20070414
  3. LEVAQUIN [Suspect]
     Indication: SINUSITIS
     Dosage: 500MG   1 DAILY  PO
     Route: 048
     Dates: start: 20070411, end: 20070414

REACTIONS (8)
  - ABDOMINAL PAIN [None]
  - ARTHRALGIA [None]
  - BONE PAIN [None]
  - DIZZINESS [None]
  - FATIGUE [None]
  - GAIT DISTURBANCE [None]
  - NAUSEA [None]
  - PRESYNCOPE [None]
